FAERS Safety Report 9703032 (Version 1)
Quarter: 2013Q4

REPORT INFORMATION
  Report Type: Spontaneous
  Country: ES (occurrence: ES)
  Receive Date: 20131122
  Receipt Date: 20131122
  Transmission Date: 20140711
  Serious: Yes (Other)
  Sender: FDA-Public Use
  Company Number: ES-ROCHE-1304451

PATIENT
  Age: 68 Year
  Sex: Male

DRUGS (4)
  1. AVASTIN [Suspect]
     Indication: COLON CANCER
     Route: 042
     Dates: start: 20121031, end: 20131028
  2. FLUOROURACILE [Suspect]
     Indication: COLON CANCER
     Route: 042
     Dates: start: 20121017, end: 20131028
  3. FOLINIC ACID [Suspect]
     Indication: COLON CANCER
     Route: 065
     Dates: start: 20121017, end: 20131028
  4. IRINOTECAN [Suspect]
     Indication: COLON CANCER
     Route: 042
     Dates: start: 20121017, end: 20131028

REACTIONS (1)
  - Hypertriglyceridaemia [Recovered/Resolved]
